FAERS Safety Report 9739231 (Version 1)
Quarter: 2013Q4

REPORT INFORMATION
  Report Type: Spontaneous
  Country: JP (occurrence: JP)
  Receive Date: 20131209
  Receipt Date: 20131209
  Transmission Date: 20140711
  Serious: Yes (Death)
  Sender: FDA-Public Use
  Company Number: JP-JNJFOC-20131118351

PATIENT
  Age: 8 Decade
  Sex: Male

DRUGS (1)
  1. DUROTEP MT [Suspect]
     Indication: PAIN
     Route: 062
     Dates: start: 20130926, end: 20131011

REACTIONS (1)
  - Acute myocardial infarction [Fatal]
